FAERS Safety Report 9437236 (Version 1)
Quarter: 2013Q3

REPORT INFORMATION
  Report Type: Report from Study
  Country: BR (occurrence: BR)
  Receive Date: 20130802
  Receipt Date: 20130802
  Transmission Date: 20140515
  Serious: Yes (Other)
  Sender: FDA-Public Use
  Company Number: PHHY2013BR082407

PATIENT
  Sex: Female
  Weight: 72 kg

DRUGS (6)
  1. ACLASTA [Suspect]
     Indication: OSTEOPOROSIS
     Dosage: 5 MG, UNK
     Route: 042
     Dates: start: 2012
  2. CALCIUM + VITAMIN D3 [Concomitant]
  3. PROLOPA HBS [Concomitant]
  4. MANTIDAN [Concomitant]
  5. CALCIUM [Concomitant]
  6. DIOVAN [Concomitant]

REACTIONS (2)
  - Patient-device incompatibility [Recovering/Resolving]
  - Medical device complication [Recovering/Resolving]
